FAERS Safety Report 9861253 (Version 1)
Quarter: 2014Q1

REPORT INFORMATION
  Report Type: Spontaneous
  Country: CH (occurrence: CH)
  Receive Date: 20140202
  Receipt Date: 20140202
  Transmission Date: 20141002
  Serious: No
  Sender: FDA-Public Use
  Company Number: CH-ALLERGAN-1304625US

PATIENT
  Sex: Male

DRUGS (1)
  1. BOTOX LYOPHILISAT [Suspect]
     Indication: PRODUCT USED FOR UNKNOWN INDICATION
     Dosage: UNK UNK, SINGLE

REACTIONS (1)
  - Dysphagia [Unknown]
